FAERS Safety Report 8556087-8 (Version None)
Quarter: 2012Q3

REPORT INFORMATION
  Report Type: 
  Country: None (occurrence: None)
  Receive Date: 20120719
  Receipt Date: 20120709
  Transmission Date: 20120928
  Serious: Yes (Hospitalization, Other)
  Sender: FDA-Public Use
  Company Number: 2012MA008474

PATIENT
  Age: 5 Year

DRUGS (1)
  1. LIDOCAINE [Suspect]
     Indication: WOUND
     Dosage: X1

REACTIONS (6)
  - INFLAMMATION [None]
  - SKIN NECROSIS [None]
  - EYELID DISORDER [None]
  - SCAR [None]
  - LAGOPHTHALMOS [None]
  - EYELID OEDEMA [None]
